FAERS Safety Report 8909357 (Version 1)
Quarter: 2012Q4

REPORT INFORMATION
  Report Type: Spontaneous
  Country: US (occurrence: None)
  Receive Date: 20121107
  Receipt Date: 20121107
  Transmission Date: 20130627
  Serious: Yes (Other)
  Sender: FDA-Public Use
  Company Number: DKLU1086067

PATIENT
  Sex: Male

DRUGS (3)
  1. DESOXYN [Suspect]
     Indication: ATTENTION DEFICIT/HYPERACTIVITY DISORDER
     Dosage: since on or about /jan/2000
  2. DESOXYN [Suspect]
     Dosage: since on or about /jan/2000
  3. LEVOTHYROXINE (LEVOTHYROXINE) [Concomitant]

REACTIONS (8)
  - Dental caries [None]
  - Mastication disorder [None]
  - Dysphagia [None]
  - Tooth loss [None]
  - Tooth abscess [None]
  - Tooth fracture [None]
  - Joint crepitation [None]
  - Product quality issue [None]
